FAERS Safety Report 11852328 (Version 1)
Quarter: 2015Q4

REPORT INFORMATION
  Report Type: Spontaneous
  Country: CH (occurrence: CH)
  Receive Date: 20151218
  Receipt Date: 20151218
  Transmission Date: 20160305
  Serious: Yes (Hospitalization, Other)
  Sender: FDA-Public Use
  Company Number: CH-ELI_LILLY_AND_COMPANY-CH201512003226

PATIENT
  Age: 46 Year
  Sex: Male
  Weight: 90 kg

DRUGS (3)
  1. CYMBALTA [Suspect]
     Active Substance: DULOXETINE HYDROCHLORIDE
     Indication: ACUTE STRESS DISORDER
     Dosage: 60 MG, QD
     Route: 048
     Dates: start: 2013, end: 20151113
  2. CIPROXIN                           /00697201/ [Interacting]
     Active Substance: CIPROFLOXACIN
     Indication: EPIDIDYMITIS
     Dosage: 750 MG, BID
     Route: 048
     Dates: start: 20151029, end: 20151113
  3. ZOLPIDEM [Concomitant]
     Active Substance: ZOLPIDEM\ZOLPIDEM TARTRATE
     Indication: PRODUCT USED FOR UNKNOWN INDICATION
     Dosage: 10 MG, PRN
     Route: 048

REACTIONS (15)
  - Epididymitis [Unknown]
  - Ear pain [Unknown]
  - Disorder of orbit [Unknown]
  - Hepatitis C [Recovered/Resolved]
  - Feeling abnormal [Unknown]
  - Off label use [Recovered/Resolved]
  - Off label use [Recovered/Resolved]
  - Syphilis [Recovered/Resolved]
  - Dizziness [Unknown]
  - Nightmare [Unknown]
  - HIV infection CDC category A [Unknown]
  - Paraesthesia [Unknown]
  - Psychotic disorder [Recovering/Resolving]
  - Tinnitus [Unknown]
  - Drug interaction [Recovered/Resolved]

NARRATIVE: CASE EVENT DATE: 20151029
